FAERS Safety Report 5789299-7 (Version None)
Quarter: 2008Q2

REPORT INFORMATION
  Report Type: 
  Country: None (occurrence: None)
  Receive Date: 20080626
  Receipt Date: 20080623
  Transmission Date: 20081010
  Serious: Yes (Other)
  Sender: FDA-Public Use
  Company Number: US-GILEAD-2008-0016560

PATIENT
  Sex: Female

DRUGS (9)
  1. LETAIRIS [Suspect]
     Indication: PULMONARY ARTERIAL HYPERTENSION
     Route: 048
     Dates: start: 20080425
  2. COUMADIN [Concomitant]
  3. SYMBICORT [Concomitant]
  4. CRESTOR [Concomitant]
  5. ASPIRIN [Concomitant]
  6. FUROSEMIDE [Concomitant]
  7. LEVOTHYROXINE SODIUM [Concomitant]
  8. METFORMIN HCL [Concomitant]
  9. LIALDA [Concomitant]

REACTIONS (3)
  - ALOPECIA [None]
  - DIZZINESS [None]
  - OEDEMA PERIPHERAL [None]
